FAERS Safety Report 9971300 (Version 1)
Quarter: 2014Q1

REPORT INFORMATION
  Report Type: Spontaneous
  Country: US (occurrence: US)
  Receive Date: 20140306
  Receipt Date: 20140306
  Transmission Date: 20141002
  Serious: No
  Sender: FDA-Public Use
  Company Number: US-ABBVIE-13P-163-1152459-00

PATIENT
  Age: 36 Year
  Sex: Female
  Weight: 79.45 kg

DRUGS (7)
  1. HUMIRA [Suspect]
     Indication: PSORIATIC ARTHROPATHY
     Dosage: NO LOADING DOSE
     Route: 058
     Dates: start: 20130830
  2. TOPAMAX [Concomitant]
     Indication: PRODUCT USED FOR UNKNOWN INDICATION
  3. AMBIEN [Concomitant]
     Indication: PRODUCT USED FOR UNKNOWN INDICATION
  4. OXYCODONE [Concomitant]
     Indication: PRODUCT USED FOR UNKNOWN INDICATION
  5. ATIVAN [Concomitant]
     Indication: PRODUCT USED FOR UNKNOWN INDICATION
  6. ZOFRAN [Concomitant]
     Indication: PRODUCT USED FOR UNKNOWN INDICATION
  7. FLEXERIL [Concomitant]

REACTIONS (8)
  - Fatigue [Recovered/Resolved]
  - Fatigue [Recovered/Resolved]
  - Device malfunction [Unknown]
  - Migraine [Recovered/Resolved]
  - Hypotension [Recovered/Resolved]
  - Pruritus [Recovered/Resolved]
  - Injection site pain [Not Recovered/Not Resolved]
  - Headache [Recovered/Resolved]
